FAERS Safety Report 9219992 (Version 2)
Quarter: 2013Q2

REPORT INFORMATION
  Report Type: Report from Study
  Country: DE (occurrence: DE)
  Receive Date: 20130409
  Receipt Date: 20130508
  Transmission Date: 20140414
  Serious: Yes (Other)
  Sender: FDA-Public Use
  Company Number: DE-ROCHE-1210313

PATIENT
  Age: 75 Year
  Sex: 0

DRUGS (2)
  1. ALTEPLASE [Suspect]
     Indication: RETINAL VEIN OCCLUSION
     Dosage: 200 MCG/ML WAS INJECTED USING A VOLUME BETWEEN 0.5 AND 1.5 ML CORRESPONDING TO 100 TO 300 MCG
     Route: 050
  2. ALTEPLASE [Suspect]
     Indication: OFF LABEL USE

REACTIONS (1)
  - Glaucoma [Unknown]
